FAERS Safety Report 10975756 (Version 1)
Quarter: 2015Q2

REPORT INFORMATION
  Report Type: Spontaneous
  Country: US (occurrence: US)
  Receive Date: 20150401
  Receipt Date: 20150401
  Transmission Date: 20150821
  Serious: No
  Sender: FDA-Public Use
  Company Number: US-PFIZER INC-2015112276

PATIENT
  Age: 28 Year
  Sex: Male

DRUGS (1)
  1. VIAGRA [Suspect]
     Active Substance: SILDENAFIL CITRATE
     Indication: EJACULATION DISORDER
     Dosage: 100 MG (TWO 50 MG TABLETS)
     Dates: start: 20150326

REACTIONS (3)
  - Semen discolouration [Recovered/Resolved]
  - Penis disorder [Recovered/Resolved]
  - Ejaculation disorder [Recovered/Resolved]

NARRATIVE: CASE EVENT DATE: 20150326
